FAERS Safety Report 26068555 (Version 1)
Quarter: 2025Q4

REPORT INFORMATION
  Report Type: Report from Study
  Country: CA (occurrence: CA)
  Receive Date: 20251120
  Receipt Date: 20251120
  Transmission Date: 20260119
  Serious: Yes (Other)
  Sender: TAKEDA
  Company Number: CA-TAKEDA-2025TUS102255

PATIENT
  Age: 88 Year
  Sex: Male

DRUGS (16)
  1. VEDOLIZUMAB [Suspect]
     Active Substance: VEDOLIZUMAB
     Indication: Crohn^s disease
     Dosage: 300 MILLIGRAM
  2. VEDOLIZUMAB [Suspect]
     Active Substance: VEDOLIZUMAB
     Dosage: 300 MILLIGRAM, Q4WEEKS
     Dates: start: 20240517
  3. CALCITRIOL [Concomitant]
     Active Substance: CALCITRIOL
     Dosage: UNK
  4. CALCIUM CARBONATE [Concomitant]
     Active Substance: CALCIUM CARBONATE
     Dosage: UNK
  5. LASIX [Concomitant]
     Active Substance: FUROSEMIDE
     Dosage: UNK
  6. LOPERAMIDE [Concomitant]
     Active Substance: LOPERAMIDE
     Dosage: UNK
  7. LOSARTAN [Concomitant]
     Active Substance: LOSARTAN
     Dosage: UNK
  8. METOPROLOL [Concomitant]
     Active Substance: METOPROLOL
     Dosage: UNK
  9. CHOLESTYRAMINE [Concomitant]
     Active Substance: CHOLESTYRAMINE
     Dosage: UNK
  10. Replavite [Concomitant]
     Dosage: UNK
  11. TESTOSTERONE CYPIONATE [Concomitant]
     Active Substance: TESTOSTERONE CYPIONATE
     Dosage: UNK
  12. VITAMIN B12 [Concomitant]
     Active Substance: CYANOCOBALAMIN
     Dosage: UNK
  13. REVLIMID [Concomitant]
     Active Substance: LENALIDOMIDE
     Dosage: UNK
  14. Elmarine [Concomitant]
     Dosage: UNK
  15. LENALIDOMIDE [Concomitant]
     Active Substance: LENALIDOMIDE
     Dosage: UNK
  16. EMLA [Concomitant]
     Active Substance: LIDOCAINE\PRILOCAINE
     Dosage: UNK

REACTIONS (2)
  - Skin cancer [Unknown]
  - Off label use [Unknown]

NARRATIVE: CASE EVENT DATE: 20240517
